FAERS Safety Report 5389693-2 (Version None)
Quarter: 2007Q3

REPORT INFORMATION
  Report Type: 
  Country: None (occurrence: None)
  Receive Date: 20070717
  Receipt Date: 20070705
  Transmission Date: 20080115
  Serious: Yes (Hospitalization)
  Sender: FDA-Public Use
  Company Number: US-ELI_LILLY_AND_COMPANY-US200707001834

PATIENT
  Age: 42 Year
  Sex: Female
  Weight: 85.5 kg

DRUGS (4)
  1. DULOXETINE HYDROCHLORIDE [Suspect]
     Indication: BACK PAIN
     Dosage: UNK MG, UNK
     Route: 048
     Dates: start: 20070702, end: 20070702
  2. ADVIL                              /00109201/ [Concomitant]
     Indication: BACK PAIN
     Dates: start: 20050101
  3. ASPIRIN [Concomitant]
     Indication: PROPHYLAXIS
     Dates: start: 20040101
  4. GLUCOSAMINE W/CHONDROITIN [Concomitant]
     Indication: OSTEOARTHRITIS
     Dates: start: 20070301

REACTIONS (3)
  - DYSPNOEA [None]
  - MUSCULAR WEAKNESS [None]
  - SYNCOPE [None]
